FAERS Safety Report 21854707 (Version 1)
Quarter: 2023Q1

REPORT INFORMATION
  Report Type: Spontaneous
  Country: US (occurrence: US)
  Receive Date: 20230112
  Receipt Date: 20230112
  Transmission Date: 20230417
  Serious: No
  Sender: FDA-Public Use
  Company Number: US-PERRIGO-22US014528

PATIENT
  Age: 80 Year
  Sex: Male
  Weight: 78.458 kg

DRUGS (7)
  1. IBUPROFEN [Suspect]
     Active Substance: IBUPROFEN
     Indication: Prophylaxis
     Dosage: 200 MG, PRN, QD OR QOD
     Route: 048
     Dates: start: 202210, end: 2022
  2. IBUPROFEN [Suspect]
     Active Substance: IBUPROFEN
     Indication: Headache
     Dosage: 400 MG, SINGLE
     Route: 048
     Dates: start: 20221101, end: 20221101
  3. IBUPROFEN [Suspect]
     Active Substance: IBUPROFEN
     Indication: Pain in extremity
  4. AMLODIPINE [Suspect]
     Active Substance: AMLODIPINE BESYLATE
     Indication: Hypertension
     Dosage: 5 MG, QD
     Route: 048
  5. METFORMIN [Suspect]
     Active Substance: METFORMIN HYDROCHLORIDE
     Indication: Diabetes mellitus
     Dosage: UNKNOWN, QD
     Route: 048
  6. DULOXETINE [Concomitant]
     Active Substance: DULOXETINE
     Indication: Neuropathy peripheral
     Dosage: UNKNOWN, UNKNOWN
     Route: 065
  7. OXYBUTYNIN [Concomitant]
     Active Substance: OXYBUTYNIN
     Indication: Pollakiuria
     Dosage: 10 MG, UNKNOWN
     Route: 065
     Dates: start: 202205

REACTIONS (8)
  - Chest pain [Recovering/Resolving]
  - Back pain [Recovering/Resolving]
  - Diarrhoea [Recovered/Resolved]
  - Vomiting [Recovered/Resolved]
  - Hypertension [Recovered/Resolved]
  - Abdominal pain upper [Recovering/Resolving]
  - Off label use [Recovered/Resolved]
  - Drug interaction [Recovered/Resolved]

NARRATIVE: CASE EVENT DATE: 20221001
